FAERS Safety Report 16773199 (Version 2)
Quarter: 2019Q4

REPORT INFORMATION
  Report Type: Spontaneous
  Country: US (occurrence: US)
  Receive Date: 20190904
  Receipt Date: 20191203
  Transmission Date: 20200122
  Serious: No
  Sender: FDA-Public Use
  Company Number: US-PURDUE-USA-2019-0148078

PATIENT
  Sex: Male
  Weight: 90.7 kg

DRUGS (1)
  1. ADHANSIA XR [Suspect]
     Active Substance: METHYLPHENIDATE HYDROCHLORIDE
     Indication: ATTENTION DEFICIT/HYPERACTIVITY DISORDER
     Dosage: 25 MG, DAILY
     Route: 048
     Dates: start: 20190821, end: 20190824

REACTIONS (6)
  - Palpitations [Recovered/Resolved]
  - Heart rate increased [Recovered/Resolved]
  - Unevaluable event [Recovered/Resolved]
  - Anxiety [Recovered/Resolved]
  - Feeling jittery [Recovered/Resolved]
  - Psychomotor hyperactivity [Recovered/Resolved]
